FAERS Safety Report 10469644 (Version 2)
Quarter: 2014Q4

REPORT INFORMATION
  Report Type: Spontaneous
  Country: US (occurrence: US)
  Receive Date: 20140923
  Receipt Date: 20141009
  Transmission Date: 20150528
  Serious: Yes (Hospitalization, Disabling, Other)
  Sender: FDA-Public Use
  Company Number: US-BEH-2014045098

PATIENT
  Age: 63 Year
  Sex: Male
  Weight: 67 kg

DRUGS (27)
  1. BUDESONIDE. [Concomitant]
     Active Substance: BUDESONIDE
  2. VENTOLIN HFA [Concomitant]
     Active Substance: ALBUTEROL SULFATE
  3. VITAMIN B12 [Concomitant]
     Active Substance: CYANOCOBALAMIN
  4. LORTAB [Concomitant]
     Active Substance: ACETAMINOPHEN\HYDROCODONE BITARTRATE
  5. HIZENTRA [Suspect]
     Active Substance: HUMAN IMMUNOGLOBULIN G
     Dosage: ??-AUG-2014
     Route: 058
  6. LIDOCAINE. [Concomitant]
     Active Substance: LIDOCAINE
  7. OXYGEN. [Concomitant]
     Active Substance: OXYGEN
  8. ALBUTEROL SOLN [Concomitant]
  9. THEOCHRON ER [Concomitant]
  10. MUCINEX ER [Concomitant]
  11. REVATIO [Suspect]
     Active Substance: SILDENAFIL CITRATE
     Indication: PULMONARY HYPERTENSION
  12. FISH OIL [Concomitant]
     Active Substance: FISH OIL
  13. N-ACETYL-L-CYSTEINE [Concomitant]
  14. DIPHENHYDRAMINE [Concomitant]
     Active Substance: DIPHENHYDRAMINE
  15. ADVAIR HFA [Concomitant]
     Active Substance: FLUTICASONE PROPIONATE\SALMETEROL XINAFOATE
  16. AVASTIN [Concomitant]
     Active Substance: BEVACIZUMAB
  17. FLONASE [Concomitant]
     Active Substance: FLUTICASONE PROPIONATE
  18. ASPIRIN. [Concomitant]
     Active Substance: ASPIRIN
  19. ACETAMINOPHEN. [Concomitant]
     Active Substance: ACETAMINOPHEN
  20. ALLOPURINOL. [Concomitant]
     Active Substance: ALLOPURINOL
  21. OMEPRAZOLE DR [Concomitant]
     Active Substance: OMEPRAZOLE
  22. EPIPEN [Concomitant]
     Active Substance: EPINEPHRINE
  23. COENZYME Q10 [Concomitant]
     Active Substance: UBIDECARENONE
  24. HIZENTRA [Suspect]
     Active Substance: HUMAN IMMUNOGLOBULIN G
     Indication: IMMUNODEFICIENCY COMMON VARIABLE
     Route: 058
     Dates: start: 20140709
  25. PREDNISONE. [Concomitant]
     Active Substance: PREDNISONE
  26. ENULOSE [Concomitant]
     Active Substance: LACTULOSE
  27. VITAMIN D [Concomitant]
     Active Substance: CHOLECALCIFEROL

REACTIONS (2)
  - Thrombosis [Not Recovered/Not Resolved]
  - Blindness unilateral [Not Recovered/Not Resolved]

NARRATIVE: CASE EVENT DATE: 20140830
